FAERS Safety Report 20512691 (Version 3)
Quarter: 2022Q2

REPORT INFORMATION
  Report Type: Report from Study
  Country: IT (occurrence: IT)
  Receive Date: 20220224
  Receipt Date: 20220407
  Transmission Date: 20220720
  Serious: Yes (Hospitalization)
  Sender: FDA-Public Use
  Company Number: None

PATIENT
  Age: 18 Year
  Sex: Female

DRUGS (6)
  1. TAVOR (LORAZEPAM) [Suspect]
     Active Substance: LORAZEPAM
     Indication: Drug abuse
     Dosage: 20 MG TOTAL
     Dates: start: 20211218, end: 20211218
  2. ZOLOFT [Suspect]
     Active Substance: SERTRALINE HYDROCHLORIDE
     Dosage: 6 DF TOTAL
     Route: 048
     Dates: start: 20211218, end: 20211218
  3. OLANZAPINE [Suspect]
     Active Substance: OLANZAPINE
     Indication: Drug abuse
     Dosage: 35 MG TOTAL
     Route: 048
     Dates: start: 20211218, end: 20211218
  4. LITHIUM [Suspect]
     Active Substance: LITHIUM
     Indication: Drug abuse
     Dosage: 830 MG TOTAL
     Route: 048
     Dates: start: 20211218, end: 20211218
  5. SERTRALINE [Concomitant]
     Active Substance: SERTRALINE HYDROCHLORIDE
     Dosage: 150 MG
  6. LITHIUM SULFATE [Concomitant]
     Active Substance: LITHIUM SULFATE

REACTIONS (4)
  - Diarrhoea [Not Recovered/Not Resolved]
  - Sopor [Not Recovered/Not Resolved]
  - Vomiting [Not Recovered/Not Resolved]
  - Drug abuse [Not Recovered/Not Resolved]

NARRATIVE: CASE EVENT DATE: 20211218
